FAERS Safety Report 12585928 (Version 4)
Quarter: 2016Q3

REPORT INFORMATION
  Report Type: Spontaneous
  Country: US (occurrence: US)
  Receive Date: 20160725
  Receipt Date: 20160913
  Transmission Date: 20161109
  Serious: Yes (Other)
  Sender: FDA-Public Use
  Company Number: US-JNJCP-30000346238

PATIENT
  Age: 43 Year
  Sex: Female
  Weight: 64 kg

DRUGS (2)
  1. SHOWER TO SHOWER TALCUM POWDER [Suspect]
     Active Substance: TALC
     Route: 061
  2. JOHNSONS BABY POWDER [Suspect]
     Active Substance: TALC
     Dosage: ONE TABLESPOON AMOUNT THREE TIME DAILY
     Route: 061
     Dates: end: 20070101

REACTIONS (1)
  - Ovarian cancer [Recovering/Resolving]

NARRATIVE: CASE EVENT DATE: 20070102
